FAERS Safety Report 19815908 (Version 2)
Quarter: 2021Q3

REPORT INFORMATION
  Report Type: Spontaneous
  Country: US (occurrence: US)
  Receive Date: 20210909
  Receipt Date: 20210916
  Transmission Date: 20211014
  Serious: Yes (Other)
  Sender: FDA-Public Use
  Company Number: US-TEVA-2021-US-1950023

PATIENT
  Age: 29 Year
  Sex: Male

DRUGS (16)
  1. OLANZAPINE. [Interacting]
     Active Substance: OLANZAPINE
     Indication: PSYCHOTIC DISORDER
     Dosage: ON DAY 2
     Route: 065
  2. RISPERIDONE. [Interacting]
     Active Substance: RISPERIDONE
     Dosage: 4 MILLIGRAM DAILY; ON DAY 6
     Route: 048
  3. RISPERIDONE. [Interacting]
     Active Substance: RISPERIDONE
     Dosage: 2MG + 3MG, ON DAY 7
     Route: 048
  4. RISPERIDONE. [Interacting]
     Active Substance: RISPERIDONE
     Indication: MAJOR DEPRESSION
     Dosage: 2 MILLIGRAM DAILY; ON DAY 4
     Route: 048
  5. RISPERIDONE. [Interacting]
     Active Substance: RISPERIDONE
     Dosage: ON DAY 16
     Route: 048
  6. TRAZODONE [Interacting]
     Active Substance: TRAZODONE HYDROCHLORIDE
     Indication: SLEEP DISORDER
     Dosage: 50 MILLIGRAM DAILY; NIGHTLY
     Route: 065
  7. RISPERIDONE. [Interacting]
     Active Substance: RISPERIDONE
     Dosage: ON DAY 5
     Route: 048
  8. RISPERIDONE. [Interacting]
     Active Substance: RISPERIDONE
     Dosage: 6 MILLIGRAM DAILY; STARTED FROM DAY 9 ONWARDS
     Route: 048
  9. ATORVASTATIN [Concomitant]
     Active Substance: ATORVASTATIN
     Indication: MAJOR DEPRESSION
     Dosage: 20 MILLIGRAM DAILY; NIGHTLY
     Route: 065
  10. OLANZAPINE. [Interacting]
     Active Substance: OLANZAPINE
     Dosage: ON DAY 3
     Route: 065
  11. PALIPERIDONE PALMITATE [Interacting]
     Active Substance: PALIPERIDONE PALMITATE
     Indication: MAJOR DEPRESSION
     Dosage: ON DAY 8
     Route: 030
  12. RISPERIDONE. [Interacting]
     Active Substance: RISPERIDONE
     Dosage: 2MG + 1MG + 3MG, ON DAY 8
     Route: 048
  13. HYDROXYZINE [Suspect]
     Active Substance: HYDROXYZINE HYDROCHLORIDE
     Indication: ANXIETY
     Dosage: 200 MILLIGRAM DAILY;
     Route: 065
  14. SERTRALINE [Interacting]
     Active Substance: SERTRALINE HYDROCHLORIDE
     Indication: MAJOR DEPRESSION
     Dosage: 25 MILLIGRAM DAILY;
     Route: 065
  15. MIRTAZAPINE. [Concomitant]
     Active Substance: MIRTAZAPINE
     Indication: MAJOR DEPRESSION
     Dosage: 15 MILLIGRAM DAILY; NIGHTLY
     Route: 065
  16. PALIPERIDONE PALMITATE [Interacting]
     Active Substance: PALIPERIDONE PALMITATE
     Dosage: BOOSTER ON DAY 16
     Route: 030

REACTIONS (3)
  - Potentiating drug interaction [Unknown]
  - Tachycardia [Not Recovered/Not Resolved]
  - Drug interaction [Not Recovered/Not Resolved]
